FAERS Safety Report 23116171 (Version 1)
Quarter: 2023Q4

REPORT INFORMATION
  Report Type: Spontaneous
  Country: BR (occurrence: BR)
  Receive Date: 20231027
  Receipt Date: 20231027
  Transmission Date: 20240109
  Serious: Yes (Hospitalization)
  Sender: FDA-Public Use
  Company Number: BR-TORRENT-00006055

PATIENT
  Age: 41 Year
  Sex: Female
  Weight: 73 kg

DRUGS (5)
  1. LAMOTRIGINE [Suspect]
     Active Substance: LAMOTRIGINE
     Indication: Bipolar disorder
     Dosage: 1 TABLET AT NIGHT (50 MG)
     Route: 048
     Dates: start: 202310, end: 20231009
  2. FINASTERIDE [Concomitant]
     Active Substance: FINASTERIDE
     Indication: Alopecia
     Dosage: 1 TABLET IN THE MORNING
     Route: 048
     Dates: start: 2023
  3. MINOXIDIL [Concomitant]
     Active Substance: MINOXIDIL
     Indication: Alopecia
     Dosage: 1 TABLET IN THE MORNING
     Route: 048
     Dates: start: 2023
  4. PATZ SL [Concomitant]
     Indication: Sleep disorder
     Dosage: 1 TABLET AT NIGHT
     Route: 048
     Dates: start: 2022
  5. KETOPROFEN [Concomitant]
     Active Substance: KETOPROFEN
     Indication: Oropharyngeal pain
     Dosage: UNKNOWN
     Route: 065

REACTIONS (12)
  - Pyrexia [Unknown]
  - Ocular hyperaemia [Not Recovered/Not Resolved]
  - Eye discharge [Not Recovered/Not Resolved]
  - Dysphonia [Not Recovered/Not Resolved]
  - Oropharyngeal pain [Recovered/Resolved]
  - Rash [Not Recovered/Not Resolved]
  - Therapy cessation [Unknown]
  - Pruritus [Unknown]
  - Rhinorrhoea [Not Recovered/Not Resolved]
  - Malaise [Not Recovered/Not Resolved]
  - Asthenia [Not Recovered/Not Resolved]
  - Condition aggravated [Not Recovered/Not Resolved]

NARRATIVE: CASE EVENT DATE: 20231006
